FAERS Safety Report 6978222-5 (Version None)
Quarter: 2010Q3

REPORT INFORMATION
  Report Type: 
  Country: None (occurrence: None)
  Receive Date: 20100913
  Receipt Date: 20100902
  Transmission Date: 20110219
  Serious: Yes (Other)
  Sender: FDA-Public Use
  Company Number: ES-ELI_LILLY_AND_COMPANY-ES201009001153

PATIENT
  Sex: Female
  Weight: 61 kg

DRUGS (15)
  1. FORTEO [Suspect]
     Indication: OSTEOPOROSIS
     Dosage: 20 UG, DAILY (1/D)
     Route: 058
     Dates: start: 20100807
  2. PROZAC [Concomitant]
     Indication: DEPRESSION
     Dosage: 20 MG, DAILY (1/D)
     Route: 048
  3. SEGURIL [Concomitant]
     Indication: ANGIOPATHY
     Dosage: 40 MG, 2-3 DAILY
     Route: 048
  4. ATORVASTATINA [Concomitant]
     Indication: BLOOD CHOLESTEROL
     Dosage: 20 MG, DAILY (1/D)
     Route: 048
  5. LANSOPRAZOL [Concomitant]
     Indication: PROPHYLAXIS
     Dosage: 30 MG, DAILY (1/D)
     Route: 048
  6. ACETAMINOPHEN [Concomitant]
     Indication: PAIN
     Dosage: 650 MG, AS NEEDED
     Route: 048
  7. ACFOL [Concomitant]
     Dosage: 5 MG, DAILY (1/D)
     Route: 048
  8. ALDACTONE [Concomitant]
     Dosage: 100 U, DAILY (1/D)
     Route: 048
  9. ATENOLOL [Concomitant]
     Indication: HYPERTENSION
     Dosage: 100 MG, DAILY (1/D)
     Route: 048
  10. VALPROATE SODIUM [Concomitant]
     Indication: INSOMNIA
     Dosage: 100 MG, DAILY (1/D)
     Route: 048
  11. IRENOR [Concomitant]
     Indication: INSOMNIA
     Dosage: 4 MG, DAILY (1/D)
     Route: 048
  12. NOCTAMID [Concomitant]
     Indication: INSOMNIA
     Dosage: 2 MG, DAILY (1/D)
     Route: 048
  13. NITRODERM [Concomitant]
     Indication: CARDIAC DISORDER
     Dosage: 10 MG, DAILY (1/D)
     Route: 058
  14. IDALPREM [Concomitant]
     Indication: INSOMNIA
     Dosage: 5 MG, DAILY (1/D)
     Route: 048
  15. ZALDIAR [Concomitant]
     Indication: PAIN
     Dosage: 37.5 MG, 8-10 DAILY
     Route: 048

REACTIONS (3)
  - CARDIAC ARREST [None]
  - MALAISE [None]
  - TACHYCARDIA [None]
